FAERS Safety Report 15764078 (Version 1)
Quarter: 2018Q4

REPORT INFORMATION
  Report Type: Spontaneous
  Country: US (occurrence: US)
  Receive Date: 20181227
  Receipt Date: 20181227
  Transmission Date: 20190205
  Serious: No
  Sender: FDA-Public Use
  Company Number: US-DRREDDYS-USA/USA/18/0106007

PATIENT
  Age: 28 Year
  Sex: Female
  Weight: 90.9 kg

DRUGS (3)
  1. PRENATAL VITAMINS [Concomitant]
     Active Substance: VITAMINS
     Indication: VITAMIN SUPPLEMENTATION
  2. NICOTINE. [Suspect]
     Active Substance: NICOTINE
  3. NICOTINE. [Suspect]
     Active Substance: NICOTINE
     Indication: SMOKING CESSATION THERAPY
     Route: 062

REACTIONS (6)
  - Nausea [Unknown]
  - Cold sweat [Unknown]
  - Rash [Unknown]
  - Incorrect product administration duration [Unknown]
  - Exposure during pregnancy [Unknown]
  - Malaise [Unknown]
